FAERS Safety Report 6454822-6 (Version None)
Quarter: 2009Q4

REPORT INFORMATION
  Report Type: 
  Country: None (occurrence: None)
  Receive Date: 20091124
  Receipt Date: 20091112
  Transmission Date: 20100525
  Serious: Yes (Hospitalization)
  Sender: FDA-Public Use
  Company Number: IE-GENENTECH-294559

PATIENT
  Sex: Female

DRUGS (4)
  1. TRASTUZUMAB [Suspect]
     Indication: BREAST CANCER
     Dosage: 438 MG, Q3W
     Route: 042
     Dates: start: 20090729, end: 20091021
  2. AVASTIN [Suspect]
     Indication: BREAST CANCER
     Dosage: 1095 MG, Q3W
     Route: 042
     Dates: start: 20090729, end: 20091111
  3. CARBOPLATIN [Suspect]
     Indication: BREAST CANCER
     Dosage: 608 MG, Q3W
     Route: 042
     Dates: start: 20090729, end: 20091111
  4. DOCETAXEL [Suspect]
     Indication: BREAST CANCER
     Dosage: 129 MG, Q3W
     Route: 042
     Dates: start: 20090729, end: 20091111

REACTIONS (1)
  - CHEST DISCOMFORT [None]
